FAERS Safety Report 16720996 (Version 10)
Quarter: 2020Q3

REPORT INFORMATION
  Report Type: Report from Study
  Country: AR (occurrence: AR)
  Receive Date: 20190820
  Receipt Date: 20200724
  Transmission Date: 20201102
  Serious: Yes (Hospitalization, Other)
  Sender: FDA-Public Use
  Company Number: AR-AMGEN-ARGSL2019127588

PATIENT
  Age: 60 Year
  Sex: Male

DRUGS (3)
  1. VECTIBIX [Suspect]
     Active Substance: PANITUMUMAB
     Indication: COLORECTAL CANCER METASTATIC
     Dosage: UNK UNK, Q2WK
     Route: 065
  2. MORPHINE [Concomitant]
     Active Substance: MORPHINE
     Dosage: UNK
     Route: 065
  3. VECTIBIX [Suspect]
     Active Substance: PANITUMUMAB
     Dosage: UNK, Q2WK, (DOSE DECREASED) EVERY 14 DAYS
     Route: 065

REACTIONS (11)
  - Pancreatitis [Unknown]
  - Hypotension [Unknown]
  - Liver operation [Unknown]
  - Rash [Not Recovered/Not Resolved]
  - Gallbladder operation [Unknown]
  - Blood bilirubin increased [Not Recovered/Not Resolved]
  - Pruritus [Unknown]
  - Toxicity to various agents [Unknown]
  - Venous injury [Unknown]
  - Pneumonia [Unknown]
  - Dry skin [Unknown]

NARRATIVE: CASE EVENT DATE: 2019
